FAERS Safety Report 12884692 (Version 2)
Quarter: 2016Q4

REPORT INFORMATION
  Report Type: Spontaneous
  Country: IT (occurrence: IT)
  Receive Date: 20161026
  Receipt Date: 20161222
  Transmission Date: 20170207
  Serious: Yes (Other)
  Sender: FDA-Public Use
  Company Number: IT-ASTRAZENECA-2016SF10052

PATIENT
  Age: 2546 Week
  Sex: Male

DRUGS (1)
  1. CRESTOR [Suspect]
     Active Substance: ROSUVASTATIN CALCIUM
     Indication: HYPERCHOLESTEROLAEMIA
     Route: 048
     Dates: start: 20160615, end: 20160713

REACTIONS (8)
  - Skin necrosis [Recovered/Resolved]
  - Arthralgia [Recovered/Resolved]
  - Rash macular [Recovered/Resolved]
  - Nikolsky^s sign [Recovered/Resolved]
  - Myalgia [Recovered/Resolved]
  - Dermatitis [Unknown]
  - Skin reaction [Recovered/Resolved]
  - Rash papular [Recovered/Resolved]

NARRATIVE: CASE EVENT DATE: 20160713
